FAERS Safety Report 6750483-7 (Version None)
Quarter: 2010Q2

REPORT INFORMATION
  Report Type: 
  Country: None (occurrence: None)
  Receive Date: 20100601
  Receipt Date: 20100528
  Transmission Date: 20101027
  Serious: Yes (Hospitalization)
  Sender: FDA-Public Use
  Company Number: CA-MERCK-0907CAN00079

PATIENT
  Age: 77 Year
  Sex: Male

DRUGS (16)
  1. PROSCAR [Suspect]
     Route: 048
     Dates: start: 20090101
  2. ALBUTEROL SULFATE [Concomitant]
     Route: 065
  3. ASPIRIN [Concomitant]
     Route: 065
  4. FLUTICASONE PROPIONATE AND SALMETEROL XINAFOATE [Concomitant]
     Route: 065
  5. GABAPENTIN [Suspect]
     Route: 065
     Dates: start: 20090601
  6. NITROGLYCERIN [Concomitant]
     Route: 065
  7. ROSUVASTATIN CALCIUM [Concomitant]
     Route: 065
  8. SODIUM BICARBONATE [Concomitant]
     Route: 065
  9. TIOTROPIUM BROMIDE [Concomitant]
     Route: 065
  10. TAMSULOSIN HYDROCHLORIDE [Concomitant]
     Route: 065
  11. SENNA [Concomitant]
     Route: 065
  12. PANTOPRAZOLE SODIUM [Concomitant]
     Route: 065
  13. METOPROLOL TARTRATE [Concomitant]
     Route: 065
  14. FOSINOPRIL SODIUM [Concomitant]
     Route: 065
  15. DARBEPOETIN ALFA [Concomitant]
     Route: 065
  16. DOCUSATE SODIUM [Concomitant]
     Route: 065

REACTIONS (1)
  - HYPOGLYCAEMIA [None]
